FAERS Safety Report 6145816-9 (Version None)
Quarter: 2009Q2

REPORT INFORMATION
  Report Type: 
  Country: None (occurrence: None)
  Receive Date: 20090407
  Receipt Date: 20090402
  Transmission Date: 20091009
  Serious: No
  Sender: FDA-Public Use
  Company Number: US-B.I. PHARMACEUTICALS,INC./RIDGEFIELD-2009-BP-04190BP

PATIENT
  Sex: Male

DRUGS (3)
  1. MIRAPEX [Suspect]
     Indication: RESTLESS LEGS SYNDROME
  2. PRESCRIPTION SLEEP AIDES [Concomitant]
     Indication: RESTLESS LEGS SYNDROME
  3. OTHER PRESCRIPTION MEDICATIONS [Concomitant]
     Indication: RESTLESS LEGS SYNDROME

REACTIONS (1)
  - RESTLESS LEGS SYNDROME [None]
